FAERS Safety Report 24028875 (Version 1)
Quarter: 2024Q2

REPORT INFORMATION
  Report Type: Spontaneous
  Country: US (occurrence: None)
  Receive Date: 20240627
  Receipt Date: 20240627
  Transmission Date: 20240716
  Serious: Yes (Other)
  Sender: FDA-Public Use
  Company Number: None

PATIENT
  Age: 82 Year
  Sex: Female

DRUGS (3)
  1. JAKAFI [Suspect]
     Active Substance: RUXOLITINIB
     Indication: Polycythaemia vera
     Dosage: 5 MG TWICE A DAY ORAL
     Route: 048
     Dates: start: 20150501
  2. POTASSIUM CITRATE [Concomitant]
     Active Substance: POTASSIUM CITRATE
     Dates: start: 20171205
  3. FML FORTE [Concomitant]
     Active Substance: FLUOROMETHOLONE
     Dates: start: 20190604

REACTIONS (1)
  - Skin cancer [None]

NARRATIVE: CASE EVENT DATE: 20240627
